FAERS Safety Report 8444786-8 (Version None)
Quarter: 2012Q2

REPORT INFORMATION
  Report Type: 
  Country: None (occurrence: None)
  Receive Date: 20120611
  Receipt Date: 20120525
  Transmission Date: 20120825
  Serious: Yes (Hospitalization)
  Sender: FDA-Public Use
  Company Number: 2012AP001265

PATIENT
  Age: 51 Year
  Sex: Female

DRUGS (8)
  1. AZITHROMYCIN [Suspect]
     Indication: NECK PAIN
     Dosage: 2 TAB;QD;PO, 1 TAB;QD;PO
     Route: 048
     Dates: start: 20120312
  2. AZITHROMYCIN [Suspect]
     Indication: OFF LABEL USE
     Dosage: 2 TAB;QD;PO, 1 TAB;QD;PO
     Route: 048
     Dates: start: 20120312
  3. AZITHROMYCIN [Suspect]
     Indication: MUSCULOSKELETAL PAIN
     Dosage: 2 TAB;QD;PO, 1 TAB;QD;PO
     Route: 048
     Dates: start: 20120312
  4. AZITHROMYCIN [Suspect]
     Indication: NECK PAIN
     Dosage: 2 TAB;QD;PO, 1 TAB;QD;PO
     Route: 048
     Dates: end: 20120316
  5. AZITHROMYCIN [Suspect]
     Indication: OFF LABEL USE
     Dosage: 2 TAB;QD;PO, 1 TAB;QD;PO
     Route: 048
     Dates: end: 20120316
  6. AZITHROMYCIN [Suspect]
     Indication: MUSCULOSKELETAL PAIN
     Dosage: 2 TAB;QD;PO, 1 TAB;QD;PO
     Route: 048
     Dates: end: 20120316
  7. NAPROXEN [Concomitant]
  8. AZITHROMYCIN [Concomitant]

REACTIONS (10)
  - DYSPHONIA [None]
  - DEHYDRATION [None]
  - DYSPNOEA [None]
  - MUCOSAL DRYNESS [None]
  - APTYALISM [None]
  - NASAL DRYNESS [None]
  - CHEST DISCOMFORT [None]
  - CHEST PAIN [None]
  - OFF LABEL USE [None]
  - THROAT TIGHTNESS [None]
